FAERS Safety Report 4379641-6 (Version None)
Quarter: 2004Q2

REPORT INFORMATION
  Report Type: 
  Country: None (occurrence: None)
  Receive Date: 20040617
  Receipt Date: 20040531
  Transmission Date: 20050107
  Serious: Yes (Death)
  Sender: FDA-Public Use
  Company Number: PHBS2004CA07176

PATIENT
  Age: 58 Year
  Sex: Female
  Weight: 92 kg

DRUGS (7)
  1. ZELNORM [Suspect]
     Indication: IRRITABLE BOWEL SYNDROME
     Dosage: 6 MG, UNK
     Route: 048
     Dates: start: 20040501
  2. ATIVAN [Concomitant]
     Dosage: 1 MG, QD
  3. EFFEXOR XR [Concomitant]
     Dosage: 37.5 MG, QD
  4. ARTHROTEC [Concomitant]
     Dosage: 75 MG/DAY
     Route: 048
  5. ZOMIG [Concomitant]
     Indication: MIGRAINE
     Dosage: 5 MG, UNK
  6. METROGEL [Concomitant]
     Dosage: .75 %, TID
  7. IMODIUM [Concomitant]

REACTIONS (1)
  - DEATH [None]
